FAERS Safety Report 11467482 (Version 2)
Quarter: 2016Q3

REPORT INFORMATION
  Report Type: Spontaneous
  Country: US (occurrence: US)
  Receive Date: 20150908
  Receipt Date: 20160729
  Transmission Date: 20161109
  Serious: No
  Sender: FDA-Public Use
  Company Number: US-009507513-1508USA013672

PATIENT
  Sex: Female

DRUGS (2)
  1. ACTONEL [Suspect]
     Active Substance: RISEDRONATE SODIUM
     Indication: OSTEOPOROSIS
     Dosage: UNK
  2. FOSAMAX [Suspect]
     Active Substance: ALENDRONATE SODIUM
     Indication: OSTEOPOROSIS
     Dosage: UNK
     Route: 048

REACTIONS (7)
  - Hot flush [Unknown]
  - Respiratory disorder [Unknown]
  - Hyperhidrosis [Unknown]
  - Spinal column stenosis [Unknown]
  - Chest discomfort [Unknown]
  - Adverse event [Unknown]
  - Dizziness [Unknown]
